FAERS Safety Report 8332715-7 (Version None)
Quarter: 2012Q2

REPORT INFORMATION
  Report Type: 
  Country: None (occurrence: None)
  Receive Date: 20120503
  Receipt Date: 20120425
  Transmission Date: 20120825
  Serious: Yes (Hospitalization)
  Sender: FDA-Public Use
  Company Number: US-US-EMD SERONO, INC.-7127348

PATIENT
  Sex: Female
  Weight: 56 kg

DRUGS (2)
  1. REBIF [Suspect]
     Route: 058
  2. REBIF [Suspect]
     Indication: MULTIPLE SCLEROSIS
     Route: 058
     Dates: start: 20120323

REACTIONS (5)
  - SWOLLEN TONGUE [None]
  - INFLUENZA LIKE ILLNESS [None]
  - DYSPHAGIA [None]
  - CONTUSION [None]
  - INJECTION SITE ERYTHEMA [None]
